FAERS Safety Report 5046533-9 (Version None)
Quarter: 2006Q2

REPORT INFORMATION
  Report Type: 
  Country: None (occurrence: None)
  Receive Date: 20060630
  Receipt Date: 20060622
  Transmission Date: 20061013
  Serious: Yes (Life-Threatening)
  Sender: FDA-Public Use
  Company Number: 2006046807

PATIENT
  Age: 46 Year
  Sex: Female
  Weight: 64 kg

DRUGS (3)
  1. CYTOTEC [Suspect]
     Indication: ABORTION INDUCED
     Dosage: 200 MCG, VAGINAL
     Route: 067
     Dates: start: 20060228, end: 20060228
  2. OFLOXACIN [Concomitant]
  3. MISOPROSTOL [Concomitant]

REACTIONS (13)
  - ABORTION MISSED [None]
  - ACCIDENT [None]
  - ANAEMIA [None]
  - BACTERIAL PYELONEPHRITIS [None]
  - DRUG EXPOSURE DURING PREGNANCY [None]
  - DRUG INTERACTION [None]
  - ESCHERICHIA INFECTION [None]
  - LYMPHOPENIA [None]
  - OVERDOSE [None]
  - RENAL FAILURE [None]
  - SHOCK [None]
  - TACHYCARDIA [None]
  - TWIN PREGNANCY [None]
